FAERS Safety Report 17745570 (Version 1)
Quarter: 2020Q2

REPORT INFORMATION
  Report Type: Spontaneous
  Country: GB (occurrence: GB)
  Receive Date: 20200505
  Receipt Date: 20200505
  Transmission Date: 20200714
  Serious: Yes (Hospitalization)
  Sender: FDA-Public Use
  Company Number: GB-TEVA-2020-GB-1231227

PATIENT
  Age: 59 Year
  Sex: Male

DRUGS (13)
  1. DOXORUBICIN [Suspect]
     Active Substance: DOXORUBICIN
     Indication: PLASMA CELL MYELOMA
     Dosage: FIRST LINE THERAPY.
     Route: 065
     Dates: start: 2005
  2. THALIDOMIDE [Suspect]
     Active Substance: THALIDOMIDE
     Indication: PLASMA CELL MYELOMA
     Dosage: SECOND LINE OF THERAPY
     Route: 065
     Dates: start: 2008
  3. DEXAMETHASONE. [Suspect]
     Active Substance: DEXAMETHASONE
     Indication: PLASMA CELL MYELOMA
     Dosage: SECOND LINE OF THERAPY
     Route: 065
     Dates: start: 2008
  4. CYCLOPHOSPHAMIDE. [Suspect]
     Active Substance: CYCLOPHOSPHAMIDE
     Dosage: SECOND LINE THERAPY
     Route: 065
     Dates: start: 2008
  5. VINCRISTINE [Suspect]
     Active Substance: VINCRISTINE
     Indication: PLASMA CELL MYELOMA
     Dosage: FIRST LINE THERAPY
     Route: 065
     Dates: start: 2005
  6. DEXAMETHASONE. [Suspect]
     Active Substance: DEXAMETHASONE
     Dosage: FIFTH LINE OF THERAPY; RECEIVED 24 CYCLES IN 2 YEARS
     Route: 065
     Dates: start: 2016
  7. CYCLOPHOSPHAMIDE. [Suspect]
     Active Substance: CYCLOPHOSPHAMIDE
     Indication: PLASMA CELL MYELOMA
     Dosage: FIRST LINE THERAPY
     Route: 065
     Dates: start: 2005
  8. METHYLPREDNISOLONE. [Suspect]
     Active Substance: METHYLPREDNISOLONE
     Indication: PLASMA CELL MYELOMA
     Dosage: FIRST LINE THERAPY
     Route: 065
     Dates: start: 2005
  9. BORTEZOMIB. [Suspect]
     Active Substance: BORTEZOMIB
     Indication: PLASMA CELL MYELOMA
     Dosage: FOURTH LINE OF THERAPY; 5 CYCLES ADMINISTERED.
     Route: 065
     Dates: start: 2014
  10. DEXAMETHASONE. [Suspect]
     Active Substance: DEXAMETHASONE
     Dosage: THIRD LINE OF THERAPY
     Route: 065
     Dates: start: 2011
  11. THALIDOMIDE [Suspect]
     Active Substance: THALIDOMIDE
     Dosage: THIRD LINE OF THERAPY
     Route: 065
     Dates: start: 2011
  12. DEXAMETHASONE. [Suspect]
     Active Substance: DEXAMETHASONE
     Dosage: FOURTH LINE OF THERAPY; RECEIVED 5 CYCLES.
     Route: 065
     Dates: start: 2014
  13. LENALIDOMIDE [Suspect]
     Active Substance: LENALIDOMIDE
     Indication: PLASMA CELL MYELOMA
     Dosage: FIFTH LINE OF THERAPY; RECEIVED 24 CYCLES OF THERAPY IN 2 YEARS.
     Route: 065
     Dates: start: 2016

REACTIONS (2)
  - Progressive multifocal leukoencephalopathy [Unknown]
  - JC virus infection [Unknown]
